FAERS Safety Report 9798778 (Version 2)
Quarter: 2014Q1

REPORT INFORMATION
  Report Type: Spontaneous
  Country: US (occurrence: US)
  Receive Date: 20140106
  Receipt Date: 20140106
  Transmission Date: 20141002
  Serious: No
  Sender: FDA-Public Use
  Company Number: US-GILEAD-2010-0030064

PATIENT
  Age: 60 Year
  Sex: Female

DRUGS (12)
  1. LETAIRIS [Suspect]
     Indication: COR PULMONALE CHRONIC
     Route: 048
     Dates: start: 20100612
  2. LETAIRIS [Suspect]
     Route: 048
     Dates: start: 20100608, end: 20100612
  3. LETAIRIS [Suspect]
     Route: 048
     Dates: end: 20100608
  4. FLUTICASONE [Concomitant]
  5. TYLENOL [Concomitant]
  6. CLARITIN [Concomitant]
  7. GLIMEPIRIDE [Concomitant]
  8. SPIRONOLACTONE [Concomitant]
  9. FUROSEMIDE [Concomitant]
  10. ATENOLOL [Concomitant]
  11. COUMADIN [Concomitant]
  12. TRICOR [Concomitant]

REACTIONS (3)
  - Heart rate increased [Recovered/Resolved]
  - Dizziness [Recovered/Resolved]
  - Fatigue [Recovered/Resolved]
